FAERS Safety Report 6015141-5 (Version None)
Quarter: 2008Q4

REPORT INFORMATION
  Report Type: 
  Country: None (occurrence: None)
  Receive Date: 20081219
  Receipt Date: 20081219
  Transmission Date: 20090506
  Serious: No
  Sender: FDA-Public Use
  Company Number: None

PATIENT
  Sex: Female

DRUGS (1)
  1. LAMICTAL [Suspect]
     Indication: CONVULSION
     Dosage: 150MG BID PO
     Route: 048
     Dates: start: 20080918, end: 20081120

REACTIONS (2)
  - CONVULSION [None]
  - MOUTH INJURY [None]
